FAERS Safety Report 22516460 (Version 3)
Quarter: 2024Q4

REPORT INFORMATION
  Report Type: Spontaneous
  Country: BR (occurrence: BR)
  Receive Date: 20230603
  Receipt Date: 20241014
  Transmission Date: 20250115
  Serious: Yes (Hospitalization, Other)
  Sender: CELLTRION
  Company Number: BR-CELLTRION INC.-2023BR006444

PATIENT

DRUGS (3)
  1. INFLIXIMAB [Suspect]
     Active Substance: INFLIXIMAB
     Indication: Crohn^s disease
     Dosage: 3 AMPOULES EVERY MONTH
     Route: 042
     Dates: start: 20221107
  2. INFLIXIMAB [Suspect]
     Active Substance: INFLIXIMAB
     Dosage: 3 AMPOULES EVERY TWO MONTHS
     Route: 042
  3. INFLIXIMAB [Suspect]
     Active Substance: INFLIXIMAB
     Dosage: 3 AMPOULES EVERY MONTH
     Route: 042
     Dates: start: 202308

REACTIONS (11)
  - Ulcer [Unknown]
  - Intestinal perforation [Unknown]
  - Symptom recurrence [Unknown]
  - Incisional hernia [Unknown]
  - Abdominal pain [Unknown]
  - Diarrhoea [Unknown]
  - Headache [Unknown]
  - Nausea [Unknown]
  - Viral infection [Unknown]
  - Intentional dose omission [Unknown]
  - Intentional product use issue [Unknown]

NARRATIVE: CASE EVENT DATE: 20230515
